FAERS Safety Report 25442876 (Version 1)
Quarter: 2025Q2

REPORT INFORMATION
  Report Type: Spontaneous
  Country: US (occurrence: US)
  Receive Date: 20250617
  Receipt Date: 20250617
  Transmission Date: 20250717
  Serious: No
  Sender: ROCHE
  Company Number: US-ROCHE-10000310701

PATIENT
  Sex: Female

DRUGS (7)
  1. ACTEMRA ACTPEN [Suspect]
     Active Substance: TOCILIZUMAB
     Indication: Giant cell arteritis
     Route: 058
  2. BACTRIM [Concomitant]
     Active Substance: SULFAMETHOXAZOLE\TRIMETHOPRIM
  3. CALCIUM [Concomitant]
     Active Substance: CALCIUM
  4. PREDNISONE [Concomitant]
     Active Substance: PREDNISONE
  5. ZINC [Concomitant]
     Active Substance: ZINC
  6. ALENDRONATE [Concomitant]
     Active Substance: ALENDRONATE SODIUM
  7. PANTOPRAZOLE [Concomitant]
     Active Substance: PANTOPRAZOLE

REACTIONS (2)
  - Incorrect dose administered [Unknown]
  - No adverse event [Unknown]
